FAERS Safety Report 10213360 (Version 2)
Quarter: 2014Q2

REPORT INFORMATION
  Report Type: Report from Study
  Country: CA (occurrence: CA)
  Receive Date: 20140603
  Receipt Date: 20140603
  Transmission Date: 20141212
  Serious: Yes (Hospitalization, Other)
  Sender: FDA-Public Use
  Company Number: CA-JNJFOC-20140307109

PATIENT
  Age: 57 Year
  Sex: Female
  Weight: 77 kg

DRUGS (13)
  1. REMICADE [Suspect]
     Indication: PSORIATIC ARTHROPATHY
     Route: 042
     Dates: start: 20140313
  2. REMICADE [Suspect]
     Indication: PSORIATIC ARTHROPATHY
     Route: 042
     Dates: start: 20070621
  3. REMICADE [Suspect]
     Indication: PSORIATIC ARTHROPATHY
     Dosage: 39TH INFUSION
     Route: 042
     Dates: start: 20140116
  4. RAMIPRIL [Concomitant]
     Route: 065
  5. PAXIL [Concomitant]
     Route: 065
  6. PLAVIX [Concomitant]
     Route: 065
  7. LIPITOR [Concomitant]
     Route: 065
  8. METOPROLOL [Concomitant]
     Route: 065
  9. METFORMIN [Concomitant]
     Route: 065
  10. ASA [Concomitant]
     Route: 065
  11. HYDROCHLOROTHIAZIDE [Concomitant]
     Route: 065
  12. LAMOTRIGIN [Concomitant]
     Route: 065
  13. MAGNESIUM [Concomitant]
     Route: 065

REACTIONS (5)
  - Brain neoplasm [Unknown]
  - Convulsion [Recovered/Resolved]
  - Blood magnesium decreased [Unknown]
  - Blood potassium decreased [Recovered/Resolved]
  - Malaise [Recovered/Resolved]
